FAERS Safety Report 21159625 (Version 5)
Quarter: 2022Q4

REPORT INFORMATION
  Report Type: Spontaneous
  Country: US (occurrence: US)
  Receive Date: 20220802
  Receipt Date: 20221020
  Transmission Date: 20230113
  Serious: Yes (Other)
  Sender: FDA-Public Use
  Company Number: US-JNJFOC-20220750969

PATIENT
  Age: 27 Year
  Sex: Male
  Weight: 97.610 kg

DRUGS (2)
  1. STELARA [Suspect]
     Active Substance: USTEKINUMAB
     Indication: Crohn^s disease
     Route: 058
     Dates: start: 202110
  2. STELARA [Suspect]
     Active Substance: USTEKINUMAB
     Route: 058
     Dates: start: 20220126

REACTIONS (4)
  - Disability [Unknown]
  - Product dose omission issue [Unknown]
  - Device occlusion [Unknown]
  - Product leakage [Unknown]

NARRATIVE: CASE EVENT DATE: 20220722
